FAERS Safety Report 8935817 (Version 1)
Quarter: 2012Q4

REPORT INFORMATION
  Report Type: 
  Country: JP (occurrence: JP)
  Receive Date: 20121130
  Receipt Date: 20121130
  Transmission Date: 20130627
  Serious: Yes (Other)
  Sender: FDA-Public Use
  Company Number: JP-ASTELLAS-2012JP011091

PATIENT
  Age: 36 Year
  Sex: Female
  Weight: 20 kg

DRUGS (2)
  1. FUNGUARD [Suspect]
     Indication: SYSTEMIC CANDIDA
     Dosage: 50 mg, Unknown/D
     Route: 065
     Dates: start: 20101014, end: 20101122
  2. FOSFLUCONAZOLE [Concomitant]
     Indication: SYSTEMIC CANDIDA
     Dosage: 100 mg, Unknown/D
     Route: 065
     Dates: start: 20100929, end: 20101013

REACTIONS (2)
  - Drug ineffective [Unknown]
  - Candida endophthalmitis [Unknown]
